FAERS Safety Report 5268399-4 (Version None)
Quarter: 2007Q1

REPORT INFORMATION
  Report Type: 
  Country: None (occurrence: None)
  Receive Date: 20070313
  Receipt Date: 20070307
  Transmission Date: 20070707
  Serious: Yes (Hospitalization)
  Sender: FDA-Public Use
  Company Number: TAP2007Q00327

PATIENT
  Age: 17 Year
  Sex: Female

DRUGS (3)
  1. LUPRON DEPOT [Suspect]
     Indication: ENDOMETRIOSIS
     Dosage: 3.75 MG, ONCE, INTRAMUSCULAR
     Route: 030
     Dates: start: 20070201, end: 20070201
  2. CALCIUM (CALCIUM) [Concomitant]
  3. UNSPECIFIED HORMONAL AGENT (HORMONES AND RELATED AGENTS) [Concomitant]

REACTIONS (11)
  - AMNESIA [None]
  - BLOOD PRESSURE INCREASED [None]
  - INSOMNIA [None]
  - MANIA [None]
  - NO THERAPEUTIC RESPONSE [None]
  - ORAL INTAKE REDUCED [None]
  - PANIC ATTACK [None]
  - PARANOIA [None]
  - PSYCHOTIC DISORDER [None]
  - TACHYCARDIA [None]
  - WEIGHT DECREASED [None]
